FAERS Safety Report 21622018 (Version 1)
Quarter: 2022Q4

REPORT INFORMATION
  Report Type: Other
  Country: JP (occurrence: JP)
  Receive Date: 20221121
  Receipt Date: 20221121
  Transmission Date: 20230112
  Serious: Yes (Other)
  Sender: FDA-Public Use
  Company Number: JP-GEHPL-2022JSU008345AA

PATIENT
  Age: 74 Year
  Sex: Male
  Weight: 52 kg

DRUGS (18)
  1. OMNIPAQUE [Suspect]
     Active Substance: IOHEXOL
     Indication: Scan with contrast
     Dosage: UNK UNK, SINGLE
     Route: 042
     Dates: start: 20221014, end: 20221014
  2. OMNIPAQUE [Suspect]
     Active Substance: IOHEXOL
     Indication: Arteriosclerosis coronary artery
  3. BELSOMRA [Concomitant]
     Active Substance: SUVOREXANT
     Dosage: UNK
     Route: 048
     Dates: start: 20221009, end: 20221021
  4. NICORANDIL [Concomitant]
     Active Substance: NICORANDIL
     Dosage: UNK, SINGLE
     Route: 048
     Dates: end: 20221021
  5. Imidafenacin od [Concomitant]
     Dosage: UNK
     Route: 048
     Dates: start: 20221009, end: 20221021
  6. CALONAL [Concomitant]
     Active Substance: ACETAMINOPHEN
     Dosage: UNK
     Route: 048
     Dates: start: 20221013, end: 20221021
  7. TULOBUTEROL [Concomitant]
     Active Substance: TULOBUTEROL
     Dosage: UNK
     Route: 050
     Dates: start: 20221014, end: 20221016
  8. FUROSEMIDE [Concomitant]
     Active Substance: FUROSEMIDE
     Dosage: UNK
     Route: 048
     Dates: start: 20221009, end: 20221021
  9. SPIRONOLACTONE [Concomitant]
     Active Substance: SPIRONOLACTONE
     Dosage: UNK
     Route: 048
     Dates: start: 20221009, end: 20221021
  10. SAMSCA [Concomitant]
     Active Substance: TOLVAPTAN
     Dosage: UNK
     Route: 048
     Dates: start: 20221009, end: 20221021
  11. LANSOPRAZOLE [Concomitant]
     Active Substance: LANSOPRAZOLE
     Dosage: UNK
     Route: 048
     Dates: start: 20221009, end: 20221021
  12. ASPIRIN [Concomitant]
     Active Substance: ASPIRIN
     Dosage: UNK
     Route: 048
     Dates: start: 20221009, end: 20221021
  13. BISOPROLOL FUMARATE [Concomitant]
     Active Substance: BISOPROLOL FUMARATE
     Dosage: UNK
     Route: 048
     Dates: start: 20221009, end: 20221019
  14. BISOPROLOL FUMARATE [Concomitant]
     Active Substance: BISOPROLOL FUMARATE
     Dosage: UNK
     Route: 048
     Dates: start: 20221020, end: 20221021
  15. ENALAPRIL MALEATE [Concomitant]
     Active Substance: ENALAPRIL MALEATE
     Dosage: UNK
     Route: 048
     Dates: start: 20221009, end: 20221021
  16. ATORVASTATIN OD [Concomitant]
     Dosage: UNK
     Route: 048
     Dates: start: 20221009, end: 20221021
  17. EZETIMIBE [Concomitant]
     Active Substance: EZETIMIBE
     Dosage: UNK
     Route: 048
     Dates: start: 20221009, end: 20221021
  18. RAMELTEON [Concomitant]
     Active Substance: RAMELTEON
     Dosage: UNK
     Route: 048
     Dates: start: 20221009, end: 20221021

REACTIONS (4)
  - Sneezing [Recovering/Resolving]
  - Dyspnoea [Recovering/Resolving]
  - Erythema [Recovering/Resolving]
  - Wheezing [Recovering/Resolving]

NARRATIVE: CASE EVENT DATE: 20221014
